FAERS Safety Report 7265806-2 (Version None)
Quarter: 2011Q1

REPORT INFORMATION
  Report Type: 
  Country: None (occurrence: None)
  Receive Date: 20110131
  Receipt Date: 20110124
  Transmission Date: 20110831
  Serious: Yes (Hospitalization)
  Sender: FDA-Public Use
  Company Number: A0789872A

PATIENT
  Age: 72 Year
  Sex: Male

DRUGS (6)
  1. GLYBURIDE [Concomitant]
  2. ASPIRIN [Concomitant]
  3. METFORMIN [Concomitant]
  4. AVANDIA [Suspect]
     Indication: DIABETES MELLITUS
     Dosage: 4MG PER DAY
     Route: 048
     Dates: start: 20040412, end: 20070501
  5. ALTACE [Concomitant]
  6. LIPITOR [Concomitant]

REACTIONS (4)
  - ATRIOVENTRICULAR BLOCK COMPLETE [None]
  - MYOCARDIAL INFARCTION [None]
  - CORONARY ARTERY DISEASE [None]
  - CARDIAC DISORDER [None]
